FAERS Safety Report 6385638-7 (Version None)
Quarter: 2009Q4

REPORT INFORMATION
  Report Type: 
  Country: None (occurrence: None)
  Receive Date: 20091002
  Receipt Date: 20081010
  Transmission Date: 20100525
  Serious: Yes (Other)
  Sender: FDA-Public Use
  Company Number: US-ASTRAZENECA-2008UW22382

PATIENT
  Age: 73 Year
  Sex: Female
  Weight: 54.4 kg

DRUGS (4)
  1. ARIMIDEX [Suspect]
     Indication: BREAST CANCER FEMALE
     Route: 048
  2. DILTIAZEM [Concomitant]
  3. DOXAZOSIN MESYLATE [Concomitant]
  4. LORTAB [Concomitant]

REACTIONS (1)
  - DISEASE PROGRESSION [None]
